FAERS Safety Report 11218664 (Version 1)
Quarter: 2015Q2

REPORT INFORMATION
  Report Type: Report from Study
  Country: BR (occurrence: BR)
  Receive Date: 20150625
  Receipt Date: 20150625
  Transmission Date: 20150821
  Serious: Yes (Other)
  Sender: FDA-Public Use
  Company Number: PHHY2015BR075246

PATIENT
  Sex: Male
  Weight: 67 kg

DRUGS (1)
  1. EXJADE [Suspect]
     Active Substance: DEFERASIROX
     Indication: IRON OVERLOAD
     Dosage: 4 DF (30MG/KG), QD (IN THE MORNING, IN FASTING)
     Route: 065

REACTIONS (13)
  - Arthralgia [Unknown]
  - Apathy [Unknown]
  - Aplasia pure red cell [Unknown]
  - Erectile dysfunction [Unknown]
  - Dyspnoea [Unknown]
  - Spinal pain [Not Recovered/Not Resolved]
  - Pain in extremity [Unknown]
  - Wrong technique in drug usage process [Unknown]
  - Cough [Recovering/Resolving]
  - Tendon pain [Unknown]
  - Anaemia [Unknown]
  - Osteoarthritis [Unknown]
  - Muscle spasms [Unknown]
